FAERS Safety Report 4874916-6 (Version None)
Quarter: 2006Q1

REPORT INFORMATION
  Report Type: 
  Country: None (occurrence: None)
  Receive Date: 20060104
  Receipt Date: 20051223
  Transmission Date: 20060701
  Serious: Yes (Hospitalization, Other)
  Sender: FDA-Public Use
  Company Number: 2005125932

PATIENT
  Sex: Female

DRUGS (4)
  1. VFEND [Suspect]
     Indication: ASPERGILLOSIS
  2. VFEND [Suspect]
     Indication: CANDIDIASIS
  3. FLUCONAZOLE [Concomitant]
  4. ANTIBIOTICS (ANTIOBIOTICS) [Concomitant]

REACTIONS (3)
  - HEPATIC FAILURE [None]
  - PATHOGEN RESISTANCE [None]
  - RENAL FAILURE [None]
